FAERS Safety Report 11331724 (Version 3)
Quarter: 2015Q4

REPORT INFORMATION
  Report Type: Spontaneous
  Country: US (occurrence: US)
  Receive Date: 20150803
  Receipt Date: 20151001
  Transmission Date: 20160304
  Serious: Yes (Other)
  Sender: FDA-Public Use
  Company Number: US-TEVA-582517USA

PATIENT
  Age: 65 Year
  Sex: Female
  Weight: 84 kg

DRUGS (7)
  1. NORPACE [Suspect]
     Active Substance: DISOPYRAMIDE PHOSPHATE
     Route: 065
     Dates: end: 20150524
  2. NEXIUM 24HR-OVER-THE-COUNTER [Concomitant]
     Dosage: 45 MILLIGRAM DAILY;
     Route: 048
  3. COUMADIN [Concomitant]
     Active Substance: WARFARIN SODIUM
     Indication: ATRIAL FIBRILLATION
     Dosage: 3 MILLIGRAM DAILY;
     Route: 048
     Dates: start: 201504
  4. COUMADIN [Concomitant]
     Active Substance: WARFARIN SODIUM
     Indication: CEREBROVASCULAR ACCIDENT PROPHYLAXIS
  5. DISOPYRAMIDE [Suspect]
     Active Substance: DISOPYRAMIDE
     Indication: ATRIAL FIBRILLATION
     Dosage: 400 MILLIGRAM DAILY;
     Route: 048
     Dates: start: 20150618
  6. LIPITOR [Concomitant]
     Active Substance: ATORVASTATIN CALCIUM
     Indication: BLOOD CHOLESTEROL INCREASED
     Dosage: 20 MILLIGRAM DAILY;
     Route: 048
  7. NORPACE [Suspect]
     Active Substance: DISOPYRAMIDE PHOSPHATE
     Indication: ATRIAL FIBRILLATION
     Dosage: 400 MILLIGRAM DAILY;
     Route: 065

REACTIONS (10)
  - Product substitution issue [Unknown]
  - Atrial fibrillation [Unknown]
  - Eructation [Unknown]
  - Gastrooesophageal reflux disease [Unknown]
  - Drug ineffective [Unknown]
  - Product use issue [Unknown]
  - Weight increased [Unknown]
  - Vision blurred [Not Recovered/Not Resolved]
  - Sleep apnoea syndrome [Unknown]
  - Off label use [Unknown]

NARRATIVE: CASE EVENT DATE: 20150618
